FAERS Safety Report 6192826-1 (Version None)
Quarter: 2009Q2

REPORT INFORMATION
  Report Type: 
  Country: None (occurrence: None)
  Receive Date: 20090518
  Receipt Date: 20090507
  Transmission Date: 20091009
  Serious: Yes (Other)
  Sender: FDA-Public Use
  Company Number: CN-ASTRAZENECA-2009AP02943

PATIENT
  Age: 53 Year
  Sex: Female
  Weight: 55 kg

DRUGS (3)
  1. LIDOCAINE [Suspect]
     Indication: ANAESTHESIA
     Route: 050
  2. LIDOCAINE [Suspect]
     Dosage: LAYER-TO-LAYER
     Route: 050
  3. BUPIVACAINE [Concomitant]
     Indication: ANAESTHESIA
     Route: 050

REACTIONS (5)
  - APHONIA [None]
  - DYSKINESIA [None]
  - FACIAL PARESIS [None]
  - HEART RATE [None]
  - RESPIRATORY RATE INCREASED [None]
